FAERS Safety Report 5245317-6 (Version None)
Quarter: 2007Q1

REPORT INFORMATION
  Report Type: 
  Country: None (occurrence: None)
  Receive Date: 20070223
  Receipt Date: 20070215
  Transmission Date: 20070707
  Serious: Yes (Disabling)
  Sender: FDA-Public Use
  Company Number: AU-GLAXOSMITHKLINE-B0458126A

PATIENT
  Age: 42 Year
  Sex: Female

DRUGS (4)
  1. QUILONUM SR [Suspect]
     Indication: BIPOLAR DISORDER
     Dosage: 900MG AT NIGHT
     Route: 048
     Dates: start: 20000101
  2. ZOLOFT [Concomitant]
  3. METFORMIN HCL [Concomitant]
  4. LOSEC [Concomitant]

REACTIONS (3)
  - GAIT DISTURBANCE [None]
  - NEURITIS [None]
  - NEUROPATHY PERIPHERAL [None]
